FAERS Safety Report 8152809-9 (Version None)
Quarter: 2012Q1

REPORT INFORMATION
  Report Type: 
  Country: None (occurrence: None)
  Receive Date: 20120221
  Receipt Date: 20120207
  Transmission Date: 20120608
  Serious: Yes (Hospitalization)
  Sender: FDA-Public Use
  Company Number: US-PAR PHARMACEUTICAL, INC-2012SCPR004199

PATIENT

DRUGS (3)
  1. TESTOSTERONE [Suspect]
     Indication: SUBSTANCE USE
     Dosage: 150 MG, ONCE WEEKLY
     Route: 030
  2. FINAPLIX [Suspect]
     Indication: SUBSTANCE USE
     Dosage: 2 ML, EVERY 4 DAYS
     Route: 030
  3. SUSTANON                           /00593501/ [Suspect]
     Indication: SUBSTANCE USE
     Dosage: 750 MG, ONCE WEEKLY
     Route: 030

REACTIONS (14)
  - PYREXIA [None]
  - HEART RATE INCREASED [None]
  - BLOOD SODIUM DECREASED [None]
  - BLOOD CHLORIDE DECREASED [None]
  - HIGH DENSITY LIPOPROTEIN DECREASED [None]
  - DEHYDRATION [None]
  - SELF-MEDICATION [None]
  - DIABETES MELLITUS [None]
  - DRUG ABUSE [None]
  - BLOOD OSMOLARITY INCREASED [None]
  - HEADACHE [None]
  - BLOOD PRESSURE SYSTOLIC INCREASED [None]
  - BLOOD TRIGLYCERIDES INCREASED [None]
  - GENERAL PHYSICAL HEALTH DETERIORATION [None]
